FAERS Safety Report 5303248-7 (Version None)
Quarter: 2007Q2

REPORT INFORMATION
  Report Type: 
  Country: None (occurrence: None)
  Receive Date: 20070420
  Receipt Date: 20070413
  Transmission Date: 20071010
  Serious: Yes (Hospitalization)
  Sender: FDA-Public Use
  Company Number: CHWYE460413APR07

PATIENT
  Age: 85 Year
  Sex: Female

DRUGS (6)
  1. EFFEXOR [Suspect]
     Route: 048
     Dates: start: 20061201, end: 20070101
  2. DUPHALAC [Concomitant]
     Route: 048
     Dates: start: 20061201, end: 20070101
  3. CALCIMAGON [Concomitant]
     Route: 048
     Dates: start: 20061201
  4. PANTOZOL [Concomitant]
     Route: 048
     Dates: start: 20061201
  5. TRIATEC [Suspect]
     Indication: ESSENTIAL HYPERTENSION
     Route: 048
     Dates: start: 20061201, end: 20070101
  6. FOSAMAX [Suspect]
     Indication: OSTEOPOROTIC FRACTURE
     Route: 048
     Dates: start: 20061201, end: 20070101

REACTIONS (2)
  - LYMPHOPENIA [None]
  - NEUTROPENIA [None]
